FAERS Safety Report 17550480 (Version 1)
Quarter: 2020Q1

REPORT INFORMATION
  Report Type: Spontaneous
  Country: GB (occurrence: GB)
  Receive Date: 20200317
  Receipt Date: 20200317
  Transmission Date: 20200409
  Serious: Yes (Other)
  Sender: FDA-Public Use
  Company Number: GB-FERRINGPH-2020FE01673

PATIENT
  Age: 63 Year
  Sex: Female
  Weight: 73.02 kg

DRUGS (3)
  1. VITAMIN B12 [VITAMIN B12 NOS] [Concomitant]
     Active Substance: CYANOCOBALAMIN
  2. NASONEX [Concomitant]
     Active Substance: MOMETASONE FUROATE
  3. DESMOSPRAY [Suspect]
     Active Substance: DESMOPRESSIN
     Indication: DIABETES INSIPIDUS
     Dosage: 1 DF
     Route: 045
     Dates: start: 20200130, end: 20200225

REACTIONS (4)
  - Abnormal weight gain [Recovered/Resolved]
  - Headache [Recovered/Resolved]
  - Abdominal distension [Recovered/Resolved]
  - Sinus congestion [Recovered/Resolved]

NARRATIVE: CASE EVENT DATE: 20200130
